FAERS Safety Report 7715877-1 (Version None)
Quarter: 2011Q3

REPORT INFORMATION
  Report Type: 
  Country: None (occurrence: None)
  Receive Date: 20110829
  Receipt Date: 20110829
  Transmission Date: 20111222
  Serious: No
  Sender: FDA-Public Use
  Company Number: None

PATIENT
  Age: 78 Year
  Sex: Female
  Weight: 48.987 kg

DRUGS (1)
  1. RECLAST [Suspect]
     Indication: OSTEOPOROSIS
     Dates: start: 20100504, end: 20110504

REACTIONS (6)
  - ARTHRALGIA [None]
  - FATIGUE [None]
  - CONDITION AGGRAVATED [None]
  - VERTIGO [None]
  - SOMNOLENCE [None]
  - MIGRAINE [None]
